FAERS Safety Report 12159926 (Version 1)
Quarter: 2016Q1

REPORT INFORMATION
  Report Type: Spontaneous
  Country: US (occurrence: US)
  Receive Date: 20160308
  Receipt Date: 20160308
  Transmission Date: 20160526
  Serious: No
  Sender: FDA-Public Use
  Company Number: US-BRISTOL-MYERS SQUIBB COMPANY-BMS-2016-013943

PATIENT
  Sex: Female
  Weight: 78.5 kg

DRUGS (1)
  1. KENALOG-10 [Suspect]
     Active Substance: TRIAMCINOLONE ACETONIDE
     Indication: SCLERODERMA
     Dosage: UNK
     Route: 030
     Dates: start: 20160212

REACTIONS (2)
  - Anxiety [Unknown]
  - Panic attack [Unknown]
